FAERS Safety Report 9169519 (Version 1)
Quarter: 2013Q1

REPORT INFORMATION
  Report Type: Spontaneous
  Country: ES (occurrence: ES)
  Receive Date: 20130318
  Receipt Date: 20130318
  Transmission Date: 20140127
  Serious: Yes (Hospitalization)
  Sender: FDA-Public Use
  Company Number: ES-TEVA-390339ISR

PATIENT
  Age: 80 Year
  Sex: Male

DRUGS (2)
  1. KETOCONAZOLE [Suspect]
     Indication: PROSTATE CANCER
     Dosage: 600 MILLIGRAM DAILY; TOTAL DOSE: 1200 MG
     Route: 048
     Dates: start: 20120218, end: 20120226
  2. SANDIMMUN NEORAL [Interacting]
     Indication: HEART TRANSPLANT
     Dosage: 50 MILLIGRAM DAILY; TOTAL DOSE: 75 MG
     Route: 048
     Dates: start: 1997, end: 20120306

REACTIONS (7)
  - Disease progression [Recovered/Resolved]
  - Renal failure acute [Recovered/Resolved]
  - Drug interaction [Unknown]
  - Drug level increased [Unknown]
  - Nausea [Recovered/Resolved]
  - Vomiting [Recovered/Resolved]
  - Asthenia [Recovered/Resolved]
